FAERS Safety Report 9514999 (Version 1)
Quarter: 2013Q3

REPORT INFORMATION
  Report Type: Spontaneous
  Country: US (occurrence: None)
  Receive Date: 20130909
  Receipt Date: 20130909
  Transmission Date: 20140515
  Serious: Yes (Other)
  Sender: FDA-Public Use
  Company Number: 1882389

PATIENT
  Age: 28 Year
  Sex: Female

DRUGS (1)
  1. SODIUM CHLORIDE [Suspect]
     Indication: PRODUCT USED FOR UNKNOWN INDICATION
     Dosage: 120 ML/ H,

REACTIONS (3)
  - Hyponatraemic encephalopathy [None]
  - Incorrect dose administered [None]
  - Grand mal convulsion [None]
